FAERS Safety Report 13721935 (Version 3)
Quarter: 2017Q3

REPORT INFORMATION
  Report Type: Spontaneous
  Country: US (occurrence: US)
  Receive Date: 20170706
  Receipt Date: 20170807
  Transmission Date: 20171127
  Serious: No
  Sender: FDA-Public Use
  Company Number: US-PFIZER INC-2017279864

PATIENT
  Age: 70 Year
  Sex: Female

DRUGS (9)
  1. TAMOXIFEN [Suspect]
     Active Substance: TAMOXIFEN
     Indication: BREAST CANCER METASTATIC
     Dosage: 20 MG, 1X/DAY
     Dates: start: 201601
  2. XGEVA [Suspect]
     Active Substance: DENOSUMAB
     Indication: BREAST CANCER METASTATIC
     Dosage: UNK, EVERY 3 MONTHS (QUARTERLY INJECTION)
     Dates: start: 2014
  3. THYROID [Suspect]
     Active Substance: LEVOTHYROXINE\LIOTHYRONINE
     Indication: THYROID DISORDER
     Dosage: UNK UNK, 1X/DAY (1 GRAINS ONCE A DAY)
     Dates: start: 2013
  4. CETIRIZINE [Concomitant]
     Active Substance: CETIRIZINE HYDROCHLORIDE
     Dosage: UNK
     Dates: start: 2000
  5. CELEBREX [Concomitant]
     Active Substance: CELECOXIB
     Dosage: 200 MG, 2X/DAY
     Dates: start: 2013
  6. IBRANCE [Suspect]
     Active Substance: PALBOCICLIB
     Indication: BREAST CANCER METASTATIC
     Dosage: 125 MG, 1X/DAY
     Dates: start: 201601
  7. TRAMADOL. [Suspect]
     Active Substance: TRAMADOL
     Indication: BREAST CANCER METASTATIC
     Dosage: 50 MG, UNK,(EVERY 4- 6 HOURS)
     Dates: start: 2015
  8. METFORMIN [Concomitant]
     Active Substance: METFORMIN HYDROCHLORIDE
     Dosage: 500 MG, 2X/DAY
     Dates: start: 2013
  9. CLARITIN [Concomitant]
     Active Substance: LORATADINE
     Dosage: UNK
     Dates: start: 2000

REACTIONS (4)
  - Stomatitis [Unknown]
  - Oral pain [Recovered/Resolved]
  - Lip disorder [Recovered/Resolved]
  - Pruritus [Recovering/Resolving]

NARRATIVE: CASE EVENT DATE: 20170629
